FAERS Safety Report 5207703-X (Version None)
Quarter: 2006Q4

REPORT INFORMATION
  Report Type: 
  Country: None (occurrence: None)
  Receive Date: 20061030
  Receipt Date: 20060718
  Transmission Date: 20070319
  Serious: No
  Sender: FDA-Public Use
  Company Number: 2006CT000654

PATIENT
  Age: 69 Year
  Sex: Male
  Weight: 82.5547 kg

DRUGS (6)
  1. VENTAVIS [Suspect]
     Indication: PULMONARY HYPERTENSION
     Dosage: 2.5 UG; 7XD; INH
     Route: 055
     Dates: start: 20060525, end: 20060704
  2. ALDACTONE [Concomitant]
  3. SILDENAFIL CITRATE [Concomitant]
  4. FUROSEMIDE [Concomitant]
  5. K-DUR 10 [Concomitant]
  6. DIGOXIN [Concomitant]

REACTIONS (2)
  - ABDOMINAL PAIN UPPER [None]
  - MUSCULOSKELETAL PAIN [None]
